FAERS Safety Report 7436010-X (Version None)
Quarter: 2011Q2

REPORT INFORMATION
  Report Type: 
  Country: None (occurrence: None)
  Receive Date: 20110418
  Receipt Date: 20110406
  Transmission Date: 20111010
  Serious: Yes (Hospitalization)
  Sender: FDA-Public Use
  Company Number: JPI-P-014398

PATIENT
  Age: 49 Year
  Sex: Female
  Weight: 85.7298 kg

DRUGS (10)
  1. XYREM [Suspect]
     Indication: NARCOLEPSY
     Dosage: 4.5 GM (2.25 GM,2 IN 1 D), ORAL; (TITRATING DOSE), ORAL; 9 GM (4.5 GM,2 IN 1 D),ORAL; 7.5 GM (3.75 G
     Route: 048
     Dates: start: 20100722
  2. XYREM [Suspect]
     Indication: SOMNOLENCE
     Dosage: 4.5 GM (2.25 GM,2 IN 1 D), ORAL; (TITRATING DOSE), ORAL; 9 GM (4.5 GM,2 IN 1 D),ORAL; 7.5 GM (3.75 G
     Route: 048
     Dates: start: 20100722
  3. XYREM [Suspect]
     Indication: NARCOLEPSY
     Dosage: 4.5 GM (2.25 GM,2 IN 1 D), ORAL; (TITRATING DOSE), ORAL; 9 GM (4.5 GM,2 IN 1 D),ORAL; 7.5 GM (3.75 G
     Route: 048
     Dates: start: 20101115
  4. XYREM [Suspect]
     Indication: SOMNOLENCE
     Dosage: 4.5 GM (2.25 GM,2 IN 1 D), ORAL; (TITRATING DOSE), ORAL; 9 GM (4.5 GM,2 IN 1 D),ORAL; 7.5 GM (3.75 G
     Route: 048
     Dates: start: 20101115
  5. XYREM [Suspect]
     Indication: NARCOLEPSY
     Dosage: 4.5 GM (2.25 GM,2 IN 1 D), ORAL; (TITRATING DOSE), ORAL; 9 GM (4.5 GM,2 IN 1 D),ORAL; 7.5 GM (3.75 G
     Route: 048
     Dates: end: 20110328
  6. XYREM [Suspect]
     Indication: SOMNOLENCE
     Dosage: 4.5 GM (2.25 GM,2 IN 1 D), ORAL; (TITRATING DOSE), ORAL; 9 GM (4.5 GM,2 IN 1 D),ORAL; 7.5 GM (3.75 G
     Route: 048
     Dates: end: 20110328
  7. LEVOTHYROXINE SODIUM [Concomitant]
  8. ZINC [Concomitant]
  9. ESTRADIOL, NORETHINDRONE ACETATE [Concomitant]
  10. ARMODAFINIL [Concomitant]

REACTIONS (12)
  - CONSCIOUSNESS FLUCTUATING [None]
  - FEELING JITTERY [None]
  - TREMOR [None]
  - CONVULSION [None]
  - URINARY TRACT INFECTION [None]
  - LIBIDO INCREASED [None]
  - WRONG DRUG ADMINISTERED [None]
  - DEPRESSION [None]
  - POSTICTAL STATE [None]
  - ANAEMIA [None]
  - FATIGUE [None]
  - ABDOMINAL PAIN UPPER [None]
